FAERS Safety Report 24713689 (Version 1)
Quarter: 2024Q4

REPORT INFORMATION
  Report Type: Spontaneous
  Country: US (occurrence: US)
  Receive Date: 20241209
  Receipt Date: 20241209
  Transmission Date: 20250115
  Serious: No
  Sender: REGENERON
  Company Number: US-REGENERON PHARMACEUTICALS, INC.-2024-049734

PATIENT

DRUGS (2)
  1. EYLEA [Suspect]
     Active Substance: AFLIBERCEPT
     Indication: Product used for unknown indication
     Dosage: UNK; STRENGTH: 2 MG/0.05 ML; FORMULATION: PFS GERRESHEIMER
  2. EYLEA [Suspect]
     Active Substance: AFLIBERCEPT
     Dosage: UNK; STRENGTH: 2 MG/0.05 ML; FORMULATION: PFS GERRESHEIMER

REACTIONS (2)
  - Product storage error [Unknown]
  - Product dose omission issue [Unknown]
